FAERS Safety Report 8620249-1 (Version None)
Quarter: 2012Q3

REPORT INFORMATION
  Report Type: 
  Country: None (occurrence: None)
  Receive Date: 20120817
  Receipt Date: 20120817
  Transmission Date: 20120928
  Serious: Yes (Hospitalization, Other)
  Sender: FDA-Public Use
  Company Number: None

PATIENT
  Age: 74 Year
  Sex: Male
  Weight: 74.8435 kg

DRUGS (1)
  1. DOXAZOSIN MESYLATE [Suspect]
     Indication: HYPERTENSION
     Dosage: 8 MG BID PO
     Route: 048
     Dates: start: 20120522, end: 20120615

REACTIONS (6)
  - DIZZINESS [None]
  - VERTIGO [None]
  - RETCHING [None]
  - NAUSEA [None]
  - ABASIA [None]
  - DYSURIA [None]
